FAERS Safety Report 20373406 (Version 1)
Quarter: 2022Q1

REPORT INFORMATION
  Report Type: Spontaneous
  Country: US (occurrence: US)
  Receive Date: 20220125
  Receipt Date: 20220125
  Transmission Date: 20220423
  Serious: No
  Sender: FDA-Public Use
  Company Number: US-drreddys-SPO/USA/22/0145909

PATIENT
  Age: 55 Year

DRUGS (1)
  1. ZENATANE [Suspect]
     Active Substance: ISOTRETINOIN
     Indication: Product used for unknown indication
     Dosage: RMA ISSUE DATE: 09/JULY/2021 01:35:43 PM, 15/SEPTEMBER/2021 05:34:37 PM, 18/OCTOBER/2021 05:16:44 PM

REACTIONS (2)
  - Drug ineffective [Unknown]
  - Product quality issue [Unknown]
